FAERS Safety Report 21588439 (Version 1)
Quarter: 2022Q4

REPORT INFORMATION
  Report Type: Spontaneous
  Country: US (occurrence: US)
  Receive Date: 20221114
  Receipt Date: 20221114
  Transmission Date: 20230112
  Serious: Yes (Hospitalization, Other)
  Sender: FDA-Public Use
  Company Number: US-CIPLA LTD.-2022US06593

PATIENT
  Age: 49 Year
  Sex: Male

DRUGS (1)
  1. LEVETIRACETAM [Suspect]
     Active Substance: LEVETIRACETAM
     Dosage: 22500 MILLIGRAM (358 MG/KG)
     Route: 048

REACTIONS (4)
  - Withdrawal syndrome [Recovered/Resolved]
  - Suicide attempt [Unknown]
  - Anxiety [Recovered/Resolved]
  - Intentional overdose [Unknown]
